FAERS Safety Report 13048741 (Version 1)
Quarter: 2016Q4

REPORT INFORMATION
  Report Type: Spontaneous
  Country: GB (occurrence: GB)
  Receive Date: 20161221
  Receipt Date: 20161221
  Transmission Date: 20170207
  Serious: Yes (Hospitalization)
  Sender: FDA-Public Use
  Company Number: GB-TEVA-711320ACC

PATIENT
  Age: 72 Year
  Sex: Female

DRUGS (18)
  1. GLYCERYL TRINITRATE [Concomitant]
     Active Substance: NITROGLYCERIN
     Route: 060
  2. LOPERAMIDE [Concomitant]
     Active Substance: LOPERAMIDE
  3. FERROUS SULFATE. [Suspect]
     Active Substance: FERROUS SULFATE
     Indication: IRON DEFICIENCY
     Dosage: 325 MILLIGRAM DAILY; STOPPED DUE TO DIARRHEA.
     Route: 048
     Dates: start: 2016, end: 20160904
  4. BETAHISTINE [Concomitant]
     Active Substance: BETAHISTINE
  5. METFORMIN [Concomitant]
     Active Substance: METFORMIN HYDROCHLORIDE
     Dosage: WITHHELD IN VIEW OF ACUTE KIDNEY INJURY AND DISCONTINUED.
  6. BISOPROLOL [Concomitant]
     Active Substance: BISOPROLOL
     Dosage: STOPPED
  7. DOMPERIDONE [Concomitant]
     Active Substance: DOMPERIDONE
  8. COVONIA DRY COUGH [Suspect]
     Active Substance: PHOLCODINE
     Indication: COUGH
     Route: 048
     Dates: start: 20160829, end: 20160830
  9. SOLIFENACIN [Concomitant]
     Active Substance: SOLIFENACIN
  10. IRBESARTAN. [Suspect]
     Active Substance: IRBESARTAN
     Indication: HYPERTENSION
     Dosage: 150 MILLIGRAM DAILY;
     Route: 048
     Dates: end: 20160904
  11. FOLIC ACID. [Concomitant]
     Active Substance: FOLIC ACID
  12. SIMVASTATIN. [Concomitant]
     Active Substance: SIMVASTATIN
  13. COCODAMOL [Concomitant]
     Active Substance: ACETAMINOPHEN\CODEINE PHOSPHATE
  14. LANSOPRAZOLE. [Concomitant]
     Active Substance: LANSOPRAZOLE
  15. FUROSEMIDE. [Suspect]
     Active Substance: FUROSEMIDE
     Indication: HYPERTENSION
     Dosage: 40 MILLIGRAM DAILY;
     Route: 048
     Dates: end: 20160904
  16. E45 [Concomitant]
     Active Substance: LANOLIN\LIGHT MINERAL OIL\PARAFFIN
     Route: 061
  17. AMOXICILLIN. [Suspect]
     Active Substance: AMOXICILLIN
     Indication: LOWER RESPIRATORY TRACT INFECTION
     Dosage: 1500 MILLIGRAM DAILY; 500MG TDS FOR 7 DAYS. STOPPED DUE TO DIARRHEA.
     Route: 048
     Dates: start: 20160902, end: 20160904
  18. ASPIRIN. [Concomitant]
     Active Substance: ASPIRIN

REACTIONS (7)
  - Sinus node dysfunction [Unknown]
  - Acute kidney injury [Recovering/Resolving]
  - Urine output decreased [Unknown]
  - Sinus bradycardia [Unknown]
  - Sinus arrest [Unknown]
  - Diarrhoea [Recovered/Resolved]
  - Dizziness [Unknown]

NARRATIVE: CASE EVENT DATE: 20160830
